FAERS Safety Report 18143876 (Version 1)
Quarter: 2020Q3

REPORT INFORMATION
  Report Type: Spontaneous
  Country: RU (occurrence: RU)
  Receive Date: 20200813
  Receipt Date: 20200813
  Transmission Date: 20201103
  Serious: No
  Sender: FDA-Public Use
  Company Number: RU-ALKEM LABORATORIES LIMITED-RU-ALKEM-2019-09524

PATIENT
  Age: 31 Year
  Sex: Male

DRUGS (3)
  1. TOFISOPAM [Suspect]
     Active Substance: TOFISOPAM
     Indication: ALTERED VISUAL DEPTH PERCEPTION
     Dosage: 150 MILLIGRAM, QD
     Route: 065
  2. SERTRALINE [Suspect]
     Active Substance: SERTRALINE HYDROCHLORIDE
     Indication: ALTERED VISUAL DEPTH PERCEPTION
     Dosage: 100 MILLIGRAM, QD
     Route: 065
  3. LAMOTRIGINE. [Suspect]
     Active Substance: LAMOTRIGINE
     Indication: ALTERED VISUAL DEPTH PERCEPTION
     Dosage: 200 MILLIGRAM, QD
     Route: 065

REACTIONS (1)
  - Therapy partial responder [Unknown]
